FAERS Safety Report 11539384 (Version 1)
Quarter: 2015Q3

REPORT INFORMATION
  Report Type: Spontaneous
  Country: US (occurrence: None)
  Receive Date: 20150922
  Receipt Date: 20150922
  Transmission Date: 20151125
  Serious: Yes (Disabling)
  Sender: FDA-Public Use
  Company Number: None

PATIENT
  Age: 38 Year
  Sex: Female
  Weight: 36.29 kg

DRUGS (3)
  1. ASPIRIN LOW DOSE [Concomitant]
     Active Substance: ASPIRIN
  2. ONE A DAY WOMANS [Concomitant]
  3. VANCOMYCIN [Suspect]
     Active Substance: VANCOMYCIN
     Indication: PNEUMONIA STAPHYLOCOCCAL
     Route: 042
     Dates: start: 20150612, end: 20150630

REACTIONS (5)
  - Rash [None]
  - Tinnitus [None]
  - Deafness transitory [None]
  - Alopecia [None]
  - Anxiety [None]

NARRATIVE: CASE EVENT DATE: 20150630
